FAERS Safety Report 5287804-0 (Version None)
Quarter: 2007Q1

REPORT INFORMATION
  Report Type: 
  Country: None (occurrence: None)
  Receive Date: 20070109
  Receipt Date: 20060106
  Transmission Date: 20070707
  Serious: Yes (Other)
  Sender: FDA-Public Use
  Company Number: PERC20060001

PATIENT
  Sex: Male

DRUGS (3)
  1. PERCOCET [Suspect]
     Indication: PAIN
     Dates: start: 20040101
  2. DARVOCET [Suspect]
     Indication: PAIN
     Dates: start: 20040101
  3. VICODIN [Suspect]
     Indication: PAIN
     Dates: start: 20040101

REACTIONS (4)
  - ABNORMAL BEHAVIOUR [None]
  - DRUG ABUSER [None]
  - DRUG DEPENDENCE [None]
  - THINKING ABNORMAL [None]
